FAERS Safety Report 8915683 (Version 1)
Quarter: 2012Q4

REPORT INFORMATION
  Report Type: 
  Country: US (occurrence: US)
  Receive Date: 20121119
  Receipt Date: 20121119
  Transmission Date: 20130627
  Serious: No
  Sender: FDA-Public Use
  Company Number: US-ASTRAZENECA-2012SE23641

PATIENT
  Age: 52 Year
  Sex: Female
  Weight: 74.8 kg

DRUGS (20)
  1. SEROQUEL [Suspect]
     Indication: DEPRESSION
     Route: 048
     Dates: start: 201011
  2. SEROQUEL [Suspect]
     Indication: BIPOLAR DISORDER
     Route: 048
     Dates: start: 201011
  3. SEROQUEL [Suspect]
     Indication: DEPRESSION
     Route: 048
  4. SEROQUEL [Suspect]
     Indication: BIPOLAR DISORDER
     Route: 048
  5. SEROQUEL [Suspect]
     Indication: DEPRESSION
     Route: 048
     Dates: start: 201011
  6. SEROQUEL [Suspect]
     Indication: BIPOLAR DISORDER
     Route: 048
     Dates: start: 201011
  7. SEROQUEL [Suspect]
     Indication: DEPRESSION
     Route: 048
  8. SEROQUEL [Suspect]
     Indication: BIPOLAR DISORDER
     Route: 048
  9. NECON [Concomitant]
     Indication: CONTRACEPTION
     Dosage: 135/28 MG, DAILY
     Dates: start: 2007
  10. ZIRTEC [Concomitant]
     Dates: start: 2005
  11. BABY ASPIRIN [Concomitant]
  12. JENUVIA [Concomitant]
     Indication: DIABETES MELLITUS
     Dates: start: 2012
  13. GLIPIZIDE [Concomitant]
     Indication: DIABETES MELLITUS
     Dates: start: 201203
  14. METFORMIN [Concomitant]
     Indication: DIABETES MELLITUS
     Dates: start: 201201
  15. LOVAZA [Concomitant]
     Dates: start: 2007
  16. ASTELIN [Concomitant]
     Indication: MULTIPLE ALLERGIES
     Dates: start: 1997
  17. ASTELIN [Concomitant]
     Indication: SINUS DISORDER
     Dates: start: 1997
  18. MULTIVITAMINS / VITAMIN [Concomitant]
  19. CALCIUM [Concomitant]
  20. BAYER ASPIRIN [Concomitant]
     Dates: start: 2012

REACTIONS (6)
  - Diabetes mellitus [Not Recovered/Not Resolved]
  - Peripheral arterial occlusive disease [Not Recovered/Not Resolved]
  - Dry mouth [Unknown]
  - Sedation [Recovered/Resolved]
  - Blood triglycerides increased [Not Recovered/Not Resolved]
  - Intentional drug misuse [Unknown]
